FAERS Safety Report 15585577 (Version 1)
Quarter: 2018Q4

REPORT INFORMATION
  Report Type: Spontaneous
  Country: US (occurrence: US)
  Receive Date: 20181104
  Receipt Date: 20181104
  Transmission Date: 20190205
  Serious: No
  Sender: FDA-Public Use
  Company Number: US-PRINSTON PHARMACEUTICAL INC.-2018PRN00200

PATIENT
  Age: 64 Year
  Sex: Male
  Weight: 80.73 kg

DRUGS (4)
  1. LIPITOR [Concomitant]
     Active Substance: ATORVASTATIN CALCIUM
  2. METOPROLOL. [Concomitant]
     Active Substance: METOPROLOL
  3. PAROXETINE. [Suspect]
     Active Substance: PAROXETINE
     Indication: GENERALISED ANXIETY DISORDER
     Dosage: 20 MG, 1X/DAY AT NIGHTTIME
     Route: 048
     Dates: start: 20180416, end: 20180416
  4. PAROXETINE. [Suspect]
     Active Substance: PAROXETINE
     Dosage: 30 MG, 1X/DAY AT NIGHTTIME
     Route: 048
     Dates: start: 20180417, end: 20180417

REACTIONS (3)
  - Feeling abnormal [Recovering/Resolving]
  - Incorrect dose administered [Recovered/Resolved]
  - Chills [Recovering/Resolving]

NARRATIVE: CASE EVENT DATE: 20180416
